FAERS Safety Report 13182793 (Version 2)
Quarter: 2017Q1

REPORT INFORMATION
  Report Type: Spontaneous
  Country: US (occurrence: US)
  Receive Date: 20170203
  Receipt Date: 20170329
  Transmission Date: 20170428
  Serious: Yes (Other)
  Sender: FDA-Public Use
  Company Number: PHEH2017US002422

PATIENT
  Age: 53 Year
  Sex: Male
  Weight: 100.68 kg

DRUGS (5)
  1. COSENTYX [Suspect]
     Active Substance: SECUKINUMAB
     Indication: PSORIASIS
     Dosage: UNK
     Route: 058
     Dates: start: 20150314
  2. PANTOPRAZOLE [Concomitant]
     Active Substance: PANTOPRAZOLE SODIUM
     Indication: PRODUCT USED FOR UNKNOWN INDICATION
     Dosage: 40 MG, UNK
     Route: 065
  3. ASA [Concomitant]
     Active Substance: ASPIRIN
     Indication: PRODUCT USED FOR UNKNOWN INDICATION
     Route: 065
  4. LOTENSIN [Concomitant]
     Active Substance: BENAZEPRIL HYDROCHLORIDE
     Indication: PRODUCT USED FOR UNKNOWN INDICATION
     Dosage: 40 MG, UNK
     Route: 065
  5. AMLODIPINE [Concomitant]
     Active Substance: AMLODIPINE BESYLATE
     Indication: PRODUCT USED FOR UNKNOWN INDICATION
     Route: 065

REACTIONS (22)
  - Alanine aminotransferase increased [Unknown]
  - Low density lipoprotein increased [Unknown]
  - Non-alcoholic steatohepatitis [Unknown]
  - Aspartate aminotransferase increased [Unknown]
  - Abdominal pain upper [Unknown]
  - Hepatic enzyme increased [Not Recovered/Not Resolved]
  - Mean cell haemoglobin increased [Unknown]
  - Blood alkaline phosphatase decreased [Unknown]
  - Change of bowel habit [Unknown]
  - Constipation [Unknown]
  - Flatulence [Unknown]
  - Vomiting [Unknown]
  - Dysphagia [Unknown]
  - Abdominal pain [Unknown]
  - Abdominal distension [Unknown]
  - Eructation [Unknown]
  - Nausea [Unknown]
  - Diarrhoea [Unknown]
  - Jaundice [Unknown]
  - Dyspepsia [Unknown]
  - Rectal haemorrhage [Unknown]
  - Fibrosis [Unknown]

NARRATIVE: CASE EVENT DATE: 20170118
